FAERS Safety Report 6887239-0 (Version None)
Quarter: 2010Q3

REPORT INFORMATION
  Report Type: 
  Country: None (occurrence: None)
  Receive Date: 20100730
  Receipt Date: 20100527
  Transmission Date: 20110219
  Serious: Yes (Life-Threatening, Other)
  Sender: FDA-Public Use
  Company Number: CN-ASTRAZENECA-2010SE18738

PATIENT
  Age: 25 Year
  Sex: Female

DRUGS (1)
  1. QUETIAPINE [Suspect]
     Indication: BIPOLAR DISORDER
     Dosage: 9 G WAS INGESTED
     Route: 048

REACTIONS (5)
  - COMA [None]
  - HYPOTENSION [None]
  - OVERDOSE [None]
  - RESPIRATORY DISTRESS [None]
  - SINUS TACHYCARDIA [None]
